FAERS Safety Report 7496462-6 (Version None)
Quarter: 2011Q2

REPORT INFORMATION
  Report Type: 
  Country: None (occurrence: None)
  Receive Date: 20110523
  Receipt Date: 20110512
  Transmission Date: 20111010
  Serious: Yes (Other)
  Sender: FDA-Public Use
  Company Number: CH-ASTRAZENECA-2011SE30249

PATIENT
  Age: 4 Month
  Sex: Female

DRUGS (3)
  1. SEROQUEL XR [Suspect]
     Indication: BORDERLINE PERSONALITY DISORDER
     Route: 064
  2. EFFEXOR [Suspect]
     Indication: BORDERLINE PERSONALITY DISORDER
     Route: 064
  3. CLONAZEPAM [Suspect]
     Indication: BORDERLINE PERSONALITY DISORDER
     Route: 064

REACTIONS (1)
  - DRUG WITHDRAWAL SYNDROME NEONATAL [None]
